FAERS Safety Report 10331209 (Version 1)
Quarter: 2014Q3

REPORT INFORMATION
  Report Type: Spontaneous
  Country: DE (occurrence: DE)
  Receive Date: 20140722
  Receipt Date: 20140722
  Transmission Date: 20150326
  Serious: Yes (Life-Threatening, Hospitalization)
  Sender: FDA-Public Use
  Company Number: DE-GE HEALTHCARE MEDICAL DIAGNOSTICS-VISP-PR-1407S-0331

PATIENT
  Age: 31 Year
  Sex: Male
  Weight: 78 kg

DRUGS (2)
  1. VISIPAQUE [Suspect]
     Active Substance: IODIXANOL
     Indication: DIAGNOSTIC PROCEDURE
  2. VISIPAQUE [Suspect]
     Active Substance: IODIXANOL
     Indication: INTRACRANIAL ANEURYSM
     Route: 042
     Dates: start: 20140709, end: 20140709

REACTIONS (6)
  - Dyspnoea [Recovered/Resolved]
  - Tremor [Recovered/Resolved]
  - Heart rate abnormal [Recovered/Resolved]
  - Blood pressure fluctuation [Recovered/Resolved]
  - Nausea [Recovered/Resolved]
  - Vertigo [Recovered/Resolved]

NARRATIVE: CASE EVENT DATE: 20140709
